FAERS Safety Report 9960523 (Version 1)
Quarter: 2014Q1

REPORT INFORMATION
  Report Type: Report from Study
  Country: US (occurrence: US)
  Receive Date: 20140305
  Receipt Date: 20140305
  Transmission Date: 20141002
  Serious: No
  Sender: FDA-Public Use
  Company Number: US-ABBVIE-13P-163-1107468-00

PATIENT
  Sex: Female
  Weight: 108.05 kg

DRUGS (3)
  1. HUMIRA [Suspect]
     Indication: PSORIASIS
     Dates: start: 201201
  2. HUMIRA [Suspect]
     Indication: PSORIATIC ARTHROPATHY
  3. TOPAMAX [Suspect]
     Indication: MENIERE^S DISEASE
     Dates: start: 2013

REACTIONS (3)
  - Osteoarthritis [Not Recovered/Not Resolved]
  - Weight decreased [Not Recovered/Not Resolved]
  - Psoriasis [Recovering/Resolving]
